FAERS Safety Report 7807018-7 (Version None)
Quarter: 2011Q4

REPORT INFORMATION
  Report Type: 
  Country: None (occurrence: None)
  Receive Date: 20111011
  Receipt Date: 20110909
  Transmission Date: 20120403
  Serious: Yes (Hospitalization)
  Sender: FDA-Public Use
  Company Number: US-BAYER-2011-023412

PATIENT
  Age: 19 Year
  Sex: Female
  Weight: 95.238 kg

DRUGS (7)
  1. VALTREX [Concomitant]
  2. YAZ [Suspect]
     Indication: DYSMENORRHOEA
  3. NEXIUM [Concomitant]
  4. LEXAPRO [Concomitant]
  5. NITROFURANTOIN [Concomitant]
  6. YAZ [Suspect]
     Indication: CYST
  7. YAZ [Suspect]
     Indication: PREMENSTRUAL SYNDROME
     Dosage: UNK
     Dates: start: 20070820, end: 20090318

REACTIONS (5)
  - PAIN [None]
  - CHOLECYSTECTOMY [None]
  - MALAISE [None]
  - CHOLECYSTITIS CHRONIC [None]
  - EMOTIONAL DISTRESS [None]
